FAERS Safety Report 5710441-8 (Version None)
Quarter: 2008Q2

REPORT INFORMATION
  Report Type: 
  Country: None (occurrence: None)
  Receive Date: 20080418
  Receipt Date: 20080410
  Transmission Date: 20081010
  Serious: Yes (Hospitalization, Other)
  Sender: FDA-Public Use
  Company Number: US-GENENTECH-258221

PATIENT
  Sex: Female
  Weight: 70.295 kg

DRUGS (20)
  1. RITUXAN [Suspect]
     Indication: SYSTEMIC LUPUS ERYTHEMATOSUS
     Dosage: 1 G, SINGLE
     Route: 042
     Dates: start: 20071025
  2. HEPARIN [Concomitant]
     Indication: CEREBROVASCULAR ACCIDENT
  3. SOLU-MEDROL [Concomitant]
     Indication: CEREBROVASCULAR ACCIDENT
     Dosage: 500 MG, SINGLE
     Route: 042
  4. SOLU-MEDROL [Concomitant]
     Dosage: 40 MG, QD
  5. CELLCEPT [Concomitant]
     Indication: SYSTEMIC LUPUS ERYTHEMATOSUS
  6. PREDNISONE [Concomitant]
     Indication: SYSTEMIC LUPUS ERYTHEMATOSUS
     Dosage: 40 MG, QD
  7. IV FLUIDS (TYPE UNKNOWN) [Concomitant]
     Indication: LUPUS NEPHRITIS
  8. ACE-INHIBITOR [Concomitant]
     Indication: LUPUS NEPHRITIS
  9. WARFARIN [Concomitant]
     Indication: ANTIPHOSPHOLIPID SYNDROME
  10. ARGATROBAN [Concomitant]
     Indication: ANTIPHOSPHOLIPID SYNDROME
  11. CLONIDINE HCL [Concomitant]
     Indication: HYPERTENSION
  12. COREG [Concomitant]
     Indication: HYPERTENSION
  13. METOPROLOL TARTRATE [Concomitant]
     Indication: HYPERTENSION
  14. DILAUDID [Concomitant]
     Indication: PAIN
  15. OXYCODONE HCL [Concomitant]
     Indication: PAIN
  16. OXYCONTIN [Concomitant]
     Indication: PAIN
  17. VANCOMYCIN [Concomitant]
     Indication: URINARY TRACT INFECTION
  18. CEFTIN [Concomitant]
     Indication: BACTERAEMIA
  19. CEFTAZIDIME [Concomitant]
     Indication: DRUG USE FOR UNKNOWN INDICATION
  20. CEFAZOLIN [Concomitant]
     Indication: URINARY TRACT INFECTION

REACTIONS (1)
  - ENDOCARDITIS [None]
